FAERS Safety Report 8977978 (Version 2)
Quarter: 2013Q2

REPORT INFORMATION
  Report Type: Spontaneous
  Country: US (occurrence: US)
  Receive Date: 20121219
  Receipt Date: 20130418
  Transmission Date: 20140414
  Serious: Yes (Death, Hospitalization, Other)
  Sender: FDA-Public Use
  Company Number: US-009507513-1203USA00210

PATIENT
  Sex: Female

DRUGS (2)
  1. FOSAMAX [Suspect]
     Indication: OSTEOPENIA
     Dosage: 70 MG, QW
     Route: 048
     Dates: start: 200105, end: 2008
  2. FOSAMAX [Suspect]
     Indication: OSTEOPENIA
     Dosage: 70 MG, QW
     Route: 048
     Dates: start: 2008, end: 201201

REACTIONS (15)
  - Femur fracture [Unknown]
  - Intramedullary rod insertion [Unknown]
  - Coronary artery disease [Fatal]
  - Cardiac failure congestive [Fatal]
  - Arteriosclerosis [Fatal]
  - Cervical vertebral fracture [Unknown]
  - Wrist fracture [Unknown]
  - Open reduction of fracture [Unknown]
  - Pelvic fracture [Unknown]
  - Renal failure chronic [Unknown]
  - Myocardial infarction [Unknown]
  - Anaemia [Unknown]
  - Diabetes mellitus [Unknown]
  - Atrial fibrillation [Unknown]
  - Aortic valve incompetence [Unknown]
